FAERS Safety Report 10218162 (Version 1)
Quarter: 2014Q2

REPORT INFORMATION
  Report Type: Spontaneous
  Country: US (occurrence: US)
  Receive Date: 20140605
  Receipt Date: 20140605
  Transmission Date: 20141212
  Serious: No
  Sender: FDA-Public Use
  Company Number: US-BIOGENIDEC-2014BI048091

PATIENT
  Age: 66 Year
  Sex: Female

DRUGS (10)
  1. TECFIDERA [Suspect]
     Indication: MULTIPLE SCLEROSIS
     Route: 048
     Dates: start: 20140130
  2. ADVIL [Concomitant]
  3. CYCLOBENZAPRINE HCL [Concomitant]
  4. CYMBALTA [Concomitant]
  5. FLEXERIL [Concomitant]
  6. GABAPENTIN [Concomitant]
  7. METFORMIN HCL [Concomitant]
  8. NALTREXONE HCL ANHYDROUS [Concomitant]
  9. SYNTHROID [Concomitant]
  10. VITAMIN D-3 [Concomitant]

REACTIONS (3)
  - Hypoaesthesia [Unknown]
  - Muscular weakness [Unknown]
  - Fatigue [Unknown]
